FAERS Safety Report 5528219-7 (Version None)
Quarter: 2007Q4

REPORT INFORMATION
  Report Type: 
  Country: None (occurrence: None)
  Receive Date: 20071128
  Receipt Date: 20071119
  Transmission Date: 20080405
  Serious: Yes (Hospitalization)
  Sender: FDA-Public Use
  Company Number: US-BRISTOL-MYERS SQUIBB COMPANY-13987540

PATIENT
  Age: 56 Year
  Sex: Male
  Weight: 80 kg

DRUGS (3)
  1. CETUXIMAB [Suspect]
     Indication: LIP AND/OR ORAL CAVITY CANCER
     Dosage: NOW 12-NOV-2007
     Route: 042
     Dates: start: 20071112
  2. HYDREA [Suspect]
     Indication: LIP AND/OR ORAL CAVITY CANCER
     Route: 048
     Dates: start: 20071111, end: 20071116
  3. FLUOROURACIL [Suspect]
     Indication: LIP AND/OR ORAL CAVITY CANCER
     Route: 042
     Dates: start: 20071111, end: 20071115

REACTIONS (1)
  - FEBRILE NEUTROPENIA [None]
